FAERS Safety Report 10659445 (Version 1)
Quarter: 2014Q4

REPORT INFORMATION
  Report Type: Spontaneous
  Country: US (occurrence: None)
  Receive Date: 20141205
  Receipt Date: 20141205
  Transmission Date: 20150529
  Serious: Yes (Hospitalization)
  Sender: FDA-Public Use
  Company Number: 163-POMAL-14085682

PATIENT
  Age: 62 Year
  Sex: Female
  Weight: 54.43 kg

DRUGS (16)
  1. ZOMETA [Concomitant]
     Active Substance: ZOLEDRONIC ACID
  2. PROCHLORPERAZINE. [Concomitant]
     Active Substance: PROCHLORPERAZINE
  3. DEXAMETHASONE. [Concomitant]
     Active Substance: DEXAMETHASONE
  4. TAMOXIFEN [Concomitant]
     Active Substance: TAMOXIFEN
  5. MIRALAX (MACROGOL) [Concomitant]
  6. WARFARIN [Concomitant]
     Active Substance: WARFARIN
  7. DULCOLAX (BISACODYL) [Concomitant]
     Active Substance: BISACODYL
  8. POMALYST [Suspect]
     Active Substance: POMALIDOMIDE
     Indication: PLASMA CELL MYELOMA
     Route: 048
     Dates: start: 20140511, end: 2014
  9. LIDOCAINE. [Concomitant]
     Active Substance: LIDOCAINE
  10. MULTIVITAMINS [Concomitant]
     Active Substance: VITAMINS
  11. OXYCODONE [Concomitant]
     Active Substance: OXYCODONE
  12. ARIMIDEX [Concomitant]
     Active Substance: ANASTROZOLE
  13. CALCIUM [Concomitant]
     Active Substance: CALCIUM
  14. VELCADE [Concomitant]
     Active Substance: BORTEZOMIB
  15. METOPROLOL [Concomitant]
     Active Substance: METOPROLOL
  16. OXYCONTIN [Concomitant]
     Active Substance: OXYCODONE HYDROCHLORIDE

REACTIONS (1)
  - Pneumonia [None]
